FAERS Safety Report 6983538-2 (Version None)
Quarter: 2010Q3

REPORT INFORMATION
  Report Type: 
  Country: None (occurrence: None)
  Receive Date: 20100914
  Receipt Date: 20080813
  Transmission Date: 20110219
  Serious: No
  Sender: FDA-Public Use
  Company Number: US-WYE-H05583008

PATIENT
  Sex: Male

DRUGS (1)
  1. ADVIL LIQUI-GELS [Suspect]
     Indication: PAIN
     Dosage: UNKNOWN DOSE AS NEEDED
     Route: 048
     Dates: end: 20080601

REACTIONS (2)
  - PROTEIN URINE [None]
  - RENAL DISORDER [None]
